FAERS Safety Report 9328422 (Version 1)
Quarter: 2013Q2

REPORT INFORMATION
  Report Type: Spontaneous
  Country: US (occurrence: US)
  Receive Date: 20130604
  Receipt Date: 20130604
  Transmission Date: 20140414
  Serious: No
  Sender: FDA-Public Use
  Company Number: US-SANOFI-AVENTIS-2012SA068706

PATIENT
  Age: 71 Year
  Sex: Male

DRUGS (6)
  1. LANTUS [Suspect]
     Indication: TYPE 2 DIABETES MELLITUS
     Dosage: DOSE:11 UNIT(S)
     Route: 058
     Dates: start: 2009
  2. HUMALOG [Concomitant]
  3. PIOGLITAZONE HYDROCHLORIDE [Concomitant]
  4. LISINOPRIL [Concomitant]
  5. HYTRIN [Concomitant]
  6. FINASTERIDE [Concomitant]

REACTIONS (3)
  - Chills [Unknown]
  - Therapeutic response decreased [Unknown]
  - Blood glucose decreased [Unknown]
